FAERS Safety Report 5102924-9 (Version None)
Quarter: 2006Q3

REPORT INFORMATION
  Report Type: 
  Country: None (occurrence: None)
  Receive Date: 20060907
  Receipt Date: 20060828
  Transmission Date: 20061208
  Serious: Yes (Hospitalization)
  Sender: FDA-Public Use
  Company Number: IE200608002579

PATIENT
  Sex: Male

DRUGS (9)
  1. CYMBALTA [Suspect]
     Indication: DEPRESSION
     Dosage: 60 MG,
     Dates: start: 20060727, end: 20060801
  2. BACLOFEN [Concomitant]
  3. LEXOTAN (BROMAZEPAM) [Concomitant]
  4. DETRUSITOL /SWE/(TOLTERODINE L-TARTRATE) [Concomitant]
  5. LANSOPRAZOLE [Concomitant]
  6. IBUPROFEN [Concomitant]
  7. EVENING PRIMOSE OIL (EVENING PRIMROSE OIL) [Concomitant]
  8. VIAGRA /SWE/ (SILDENAFIL CITRATE) [Concomitant]
  9. CAVERJECT [Concomitant]

REACTIONS (2)
  - CONVULSION [None]
  - ROAD TRAFFIC ACCIDENT [None]
